FAERS Safety Report 10574934 (Version 2)
Quarter: 2014Q4

REPORT INFORMATION
  Report Type: Spontaneous
  Country: US (occurrence: US)
  Receive Date: 20141110
  Receipt Date: 20141209
  Transmission Date: 20150529
  Serious: No
  Sender: FDA-Public Use
  Company Number: US-B.I. PHARMACEUTICALS,INC./RIDGEFIELD-2014-BI-52097BP

PATIENT
  Sex: Female
  Weight: 37.19 kg

DRUGS (4)
  1. PREDNISONE. [Concomitant]
     Active Substance: PREDNISONE
     Indication: ARTHRITIS
     Route: 048
  2. COMBIVENT [Suspect]
     Active Substance: ALBUTEROL SULFATE\IPRATROPIUM BROMIDE
     Indication: CHRONIC OBSTRUCTIVE PULMONARY DISEASE
     Dosage: DOSE PER APPLICATION: 20 MCG / 100 MCG; DAILY DOSE: 80 MCG/ 400 MCG
     Route: 055
     Dates: start: 2013
  3. ASMANEX [Concomitant]
     Active Substance: MOMETASONE FUROATE
     Indication: PULMONARY FIBROSIS
     Route: 055
  4. ASMANEX [Concomitant]
     Active Substance: MOMETASONE FUROATE
     Indication: PULMONARY MASS

REACTIONS (8)
  - Rib fracture [Unknown]
  - Spinal fracture [Not Recovered/Not Resolved]
  - Scapula fracture [Unknown]
  - Fall [Recovered/Resolved]
  - Spinal column injury [Recovered/Resolved]
  - Stress [Not Recovered/Not Resolved]
  - Product quality issue [Unknown]
  - Upper limb fracture [Unknown]

NARRATIVE: CASE EVENT DATE: 201407
